FAERS Safety Report 14430400 (Version 1)
Quarter: 2018Q1

REPORT INFORMATION
  Report Type: Spontaneous
  Country: TW (occurrence: TW)
  Receive Date: 20180124
  Receipt Date: 20180124
  Transmission Date: 20180509
  Serious: Yes (Death, Other)
  Sender: FDA-Public Use
  Company Number: TW-ZYDUS-018864

PATIENT
  Age: 82 Year
  Sex: Male

DRUGS (1)
  1. LANSOPRAZOLE. [Suspect]
     Active Substance: LANSOPRAZOLE
     Indication: DUODENAL ULCER PERFORATION
     Route: 065

REACTIONS (2)
  - Type IV hypersensitivity reaction [Unknown]
  - Toxic epidermal necrolysis [Fatal]
